FAERS Safety Report 18521537 (Version 1)
Quarter: 2020Q4

REPORT INFORMATION
  Report Type: Spontaneous
  Country: US (occurrence: US)
  Receive Date: 20201118
  Receipt Date: 20201118
  Transmission Date: 20210114
  Serious: Yes (Other)
  Sender: FDA-Public Use
  Company Number: None

PATIENT
  Age: 52 Year
  Sex: Male
  Weight: 120.66 kg

DRUGS (1)
  1. VABOMERE [Suspect]
     Active Substance: MEROPENEM\VABORBACTAM
     Indication: LIVER ABSCESS
     Route: 042
     Dates: start: 20201103, end: 20201109

REACTIONS (3)
  - Burning sensation [None]
  - Medical device pain [None]
  - Flank pain [None]

NARRATIVE: CASE EVENT DATE: 20201105
